FAERS Safety Report 15491927 (Version 1)
Quarter: 2018Q4

REPORT INFORMATION
  Report Type: Spontaneous
  Country: FR (occurrence: FR)
  Receive Date: 20181012
  Receipt Date: 20181012
  Transmission Date: 20190205
  Serious: Yes (Life-Threatening)
  Sender: FDA-Public Use
  Company Number: FR-AUROBINDO-AUR-APL-2018-050021

PATIENT
  Sex: Male
  Weight: 2.58 kg

DRUGS (8)
  1. SPASFON                            /00765801/ [Suspect]
     Active Substance: PHLOROGLUCINOL\1,3,5-TRIMETHOXYBENZENE
     Indication: ANALGESIC INTERVENTION SUPPORTIVE THERAPY
     Dosage: 6 DOSAGE FORM
     Route: 064
     Dates: start: 20171128, end: 20171230
  2. CLAMOXYL                           /00249603/ [Suspect]
     Active Substance: AMOXICILLIN
     Indication: ANTIBIOTIC PROPHYLAXIS
     Dosage: UNK
     Route: 064
     Dates: start: 20171228, end: 20171230
  3. INEXIUM                            /01479302/ [Suspect]
     Active Substance: ESOMEPRAZOLE MAGNESIUM
     Indication: PROPHYLAXIS AGAINST GASTROINTESTINAL ULCER
     Dosage: UNK
     Route: 064
     Dates: start: 20171031, end: 20171230
  4. INFLECTRA [Suspect]
     Active Substance: INFLIXIMAB-DYYB
     Indication: CROHN^S DISEASE
     Dosage: 400 MILLIGRAM
     Route: 064
     Dates: start: 20171031, end: 20171230
  5. CORTANCYL [Suspect]
     Active Substance: PREDNISONE
     Indication: CROHN^S DISEASE
     Dosage: 30 MILLIGRAM
     Route: 064
     Dates: start: 20171031, end: 20171230
  6. LOVENOX [Suspect]
     Active Substance: ENOXAPARIN SODIUM
     Indication: ANTICOAGULANT THERAPY
     Dosage: 0.4 MILLILITER, ONCE A DAY
     Route: 064
     Dates: start: 20171024, end: 20171230
  7. PARACETAMOL [Suspect]
     Active Substance: ACETAMINOPHEN
     Indication: ANALGESIC INTERVENTION SUPPORTIVE THERAPY
     Dosage: 3 GRAM, ONCE A DAY
     Route: 064
     Dates: start: 20171024, end: 20171230
  8. DIFFU K [Suspect]
     Active Substance: POTASSIUM CHLORIDE
     Indication: MINERAL SUPPLEMENTATION
     Dosage: 2 DOSAGE FORM, ONCE A DAY
     Route: 064
     Dates: start: 20171024, end: 20171230

REACTIONS (2)
  - Foetal malnutrition [Recovering/Resolving]
  - Premature baby [Recovering/Resolving]

NARRATIVE: CASE EVENT DATE: 20171230
